FAERS Safety Report 13383060 (Version 3)
Quarter: 2017Q3

REPORT INFORMATION
  Report Type: Spontaneous
  Country: KR (occurrence: KR)
  Receive Date: 20170329
  Receipt Date: 20170728
  Transmission Date: 20171127
  Serious: Yes (Other)
  Sender: FDA-Public Use
  Company Number: KR-009507513-1703KOR012299

PATIENT
  Age: 58 Year
  Sex: Male
  Weight: 60.1 kg

DRUGS (21)
  1. CISPLAN [Concomitant]
     Active Substance: CISPLATIN
     Indication: OESOPHAGEAL CARCINOMA
     Dosage: STRENGTH: 50MG/100ML; 100 MG, ONCE (CYCLE 1)
     Route: 042
     Dates: start: 20160822, end: 20160822
  2. DEXAMETHASONE SODIUM PHOSPHATE. [Concomitant]
     Active Substance: DEXAMETHASONE SODIUM PHOSPHATE
     Indication: PROPHYLAXIS
     Dosage: STRENGTH: 5MG/ML; 8 MG, ONCE
     Route: 042
     Dates: start: 20160823, end: 20160823
  3. CHAMPIX [Concomitant]
     Active Substance: VARENICLINE TARTRATE
     Indication: SMOKING CESSATION THERAPY
     Dosage: 0.5 MG (1 TABLET), BID
     Route: 048
     Dates: start: 20160819, end: 20160926
  4. MONILAC [Concomitant]
     Active Substance: LACTULOSE
     Indication: CONSTIPATION PROPHYLAXIS
     Dosage: 20 ML, TID
     Route: 048
     Dates: start: 20160819, end: 20160927
  5. ALOXI [Concomitant]
     Active Substance: PALONOSETRON HYDROCHLORIDE
     Indication: PREMEDICATION
     Dosage: 5 ML, ONCE
     Route: 042
     Dates: start: 20160822, end: 20160822
  6. EMEND (FOSAPREPITANT DIMEGLUMINE) [Suspect]
     Active Substance: FOSAPREPITANT DIMEGLUMINE
     Indication: PROPHYLAXIS OF NAUSEA AND VOMITING
     Dosage: 150 MG, ONCE
     Route: 042
     Dates: start: 20160822, end: 20160822
  7. FLUOROURACIL. [Concomitant]
     Active Substance: FLUOROURACIL
     Dosage: STRENGTH: 500MG/10ML; 1590 MG, QD (CYCLE 2)
     Route: 042
     Dates: start: 20160919, end: 20160922
  8. DEXAMETHASONE SODIUM PHOSPHATE. [Concomitant]
     Active Substance: DEXAMETHASONE SODIUM PHOSPHATE
     Dosage: STRENGTH: 5MG/ML; 8 MG, BID
     Route: 042
     Dates: start: 20160824, end: 20160825
  9. LAMINA G [Concomitant]
     Active Substance: SODIUM ALGINATE
     Indication: HAEMATEMESIS
     Dosage: 1 PKG, TID
     Route: 048
     Dates: start: 20160814, end: 20160926
  10. FLUOROURACIL. [Concomitant]
     Active Substance: FLUOROURACIL
     Indication: OESOPHAGEAL CARCINOMA
     Dosage: STRENGTH: 500MG/10ML; 1670 MG, QD (CYCLE 1)
     Route: 042
     Dates: start: 20160822, end: 20160825
  11. DEXAMETHASONE SODIUM PHOSPHATE. [Concomitant]
     Active Substance: DEXAMETHASONE SODIUM PHOSPHATE
     Dosage: STRENGTH: 5MG/ML; 8 MG, BID
     Route: 042
     Dates: start: 20160922, end: 20160922
  12. CISPLAN [Concomitant]
     Active Substance: CISPLATIN
     Dosage: STRENGTH: 50MG/100ML; 95 MG, ONCE (CYCLE 2)
     Route: 042
     Dates: start: 20160919, end: 20160919
  13. NUTRIFLEX LIPID SPECIAL [Concomitant]
     Indication: HYPOPHAGIA
     Dosage: 1250 ML, QD
     Route: 042
     Dates: start: 20160810, end: 20160817
  14. DEXAMETHASONE SODIUM PHOSPHATE. [Concomitant]
     Active Substance: DEXAMETHASONE SODIUM PHOSPHATE
     Dosage: STRENGTH: 5MG/ML; 12 MG, ONCE
     Route: 042
     Dates: start: 20160919, end: 20160919
  15. ALOXI [Concomitant]
     Active Substance: PALONOSETRON HYDROCHLORIDE
     Dosage: 5 ML, ONCE
     Route: 042
     Dates: start: 20160919, end: 20160919
  16. LAMINA G [Concomitant]
     Active Substance: SODIUM ALGINATE
     Indication: PROPHYLAXIS
  17. EMEND (FOSAPREPITANT DIMEGLUMINE) [Suspect]
     Active Substance: FOSAPREPITANT DIMEGLUMINE
     Dosage: 150 MG, ONCE
     Route: 042
     Dates: start: 20160919, end: 20160919
  18. DEXAMETHASONE SODIUM PHOSPHATE. [Concomitant]
     Active Substance: DEXAMETHASONE SODIUM PHOSPHATE
     Indication: PREMEDICATION
     Dosage: STRENGTH: 5MG/ML; 12 MG, ONCE
     Route: 042
     Dates: start: 20160822, end: 20160822
  19. DEXAMETHASONE SODIUM PHOSPHATE. [Concomitant]
     Active Substance: DEXAMETHASONE SODIUM PHOSPHATE
     Dosage: STRENGTH: 5MG/ML; 8 MG, QD
     Route: 042
     Dates: start: 20160920, end: 20160921
  20. PANTOLOC [Concomitant]
     Active Substance: PANTOPRAZOLE SODIUM
     Indication: VOMITING
     Dosage: 40 MG, QD
     Route: 042
     Dates: start: 20160812, end: 20160817
  21. FREAMINE HBC [Concomitant]
     Active Substance: ALANINE\ARGININE\CYSTEINE HYDROCHLORIDE\GLYCINE\HISTIDINE\ISOLEUCINE\LEUCINE\LYSINE ACETATE\METHIONINE\PHENYLALANINE\PROLINE\SERINE\THREONINE\TRYPTOPHAN\VALINE
     Indication: HYPOPHAGIA
     Dosage: 250 ML, QD, STRENGTH: REPORTED AS 250 ML/BOTTLE
     Route: 042
     Dates: start: 20160811, end: 20160817

REACTIONS (1)
  - Haematemesis [Recovered/Resolved]

NARRATIVE: CASE EVENT DATE: 20160823
